FAERS Safety Report 23057250 (Version 3)
Quarter: 2023Q4

REPORT INFORMATION
  Report Type: Spontaneous
  Country: US (occurrence: US)
  Receive Date: 20231012
  Receipt Date: 20231214
  Transmission Date: 20240109
  Serious: No
  Sender: FDA-Public Use
  Company Number: US-JNJFOC-20231021107

PATIENT
  Age: 76 Year
  Sex: Female
  Weight: 49.94 kg

DRUGS (1)
  1. STELARA [Suspect]
     Active Substance: USTEKINUMAB
     Indication: Crohn^s disease
     Dosage: NUMBER OF UNITS INVOLVED: 2
     Route: 058
     Dates: start: 20230222

REACTIONS (2)
  - Product complaint [Unknown]
  - Product dose omission issue [Unknown]
